FAERS Safety Report 7728493-2 (Version None)
Quarter: 2011Q3

REPORT INFORMATION
  Report Type: 
  Country: None (occurrence: None)
  Receive Date: 20110905
  Receipt Date: 20110830
  Transmission Date: 20111222
  Serious: Yes (Death, Hospitalization)
  Sender: FDA-Public Use
  Company Number: IL-SANOFI-AVENTIS-2011SA055825

PATIENT
  Age: 66 Year
  Sex: Male

DRUGS (3)
  1. APIDRA [Suspect]
     Dosage: 6-10
     Route: 058
  2. WARFARIN SODIUM [Concomitant]
  3. LANTUS [Suspect]
     Indication: DIABETES MELLITUS
     Route: 058

REACTIONS (4)
  - BLOOD CREATININE INCREASED [None]
  - BRAIN NEOPLASM [None]
  - DEHYDRATION [None]
  - CEREBROVASCULAR ACCIDENT [None]
